FAERS Safety Report 12854642 (Version 1)
Quarter: 2016Q4

REPORT INFORMATION
  Report Type: Spontaneous
  Country: US (occurrence: US)
  Receive Date: 20161017
  Receipt Date: 20161017
  Transmission Date: 20170207
  Serious: No
  Sender: FDA-Public Use
  Company Number: US-PERRIGO-15US013212

PATIENT
  Age: 76 Year
  Sex: Female
  Weight: 88.89 kg

DRUGS (1)
  1. NICOTINE POLACRILEX [Suspect]
     Active Substance: NICOTINE
     Indication: SMOKING CESSATION THERAPY
     Dosage: 4 MG, EVERY 4 HOURS
     Route: 002
     Dates: start: 2008

REACTIONS (4)
  - Tooth discolouration [Unknown]
  - Tongue discolouration [Unknown]
  - Chromaturia [Unknown]
  - Oral mucosal discolouration [Unknown]

NARRATIVE: CASE EVENT DATE: 20151206
